FAERS Safety Report 19174020 (Version 2)
Quarter: 2021Q2

REPORT INFORMATION
  Report Type: Spontaneous
  Country: US (occurrence: US)
  Receive Date: 20210423
  Receipt Date: 20210520
  Transmission Date: 20210717
  Serious: Yes (Other)
  Sender: FDA-Public Use
  Company Number: US-PFIZER INC-2021354685

PATIENT
  Age: 66 Year
  Sex: Female
  Weight: 74.84 kg

DRUGS (1)
  1. IBRANCE [Suspect]
     Active Substance: PALBOCICLIB
     Indication: BREAST CANCER METASTATIC
     Dosage: 100 MG, CYCLIC (ONCE DAILY, 21 DAYS ON AND OFF)
     Route: 048
     Dates: start: 202011

REACTIONS (4)
  - Onycholysis [Unknown]
  - Blood count abnormal [Unknown]
  - Cataract [Unknown]
  - Retinal detachment [Unknown]

NARRATIVE: CASE EVENT DATE: 2020
